FAERS Safety Report 19446784 (Version 1)
Quarter: 2021Q2

REPORT INFORMATION
  Report Type: Spontaneous
  Country: RU (occurrence: RU)
  Receive Date: 20210622
  Receipt Date: 20210622
  Transmission Date: 20210717
  Serious: Yes (Other)
  Sender: FDA-Public Use
  Company Number: RU-ROCHE-2852353

PATIENT
  Sex: Female

DRUGS (4)
  1. AVASTIN [Suspect]
     Active Substance: BEVACIZUMAB
     Indication: PRODUCT USED FOR UNKNOWN INDICATION
     Route: 065
  2. TRANEXAM [Concomitant]
     Active Substance: TRANEXAMIC ACID
  3. NETTLE [Concomitant]
     Active Substance: URTICA DIOICA POLLEN
  4. DUPHASTON [Concomitant]
     Active Substance: DYDROGESTERONE

REACTIONS (2)
  - Haemoglobin decreased [Not Recovered/Not Resolved]
  - Haemorrhage [Not Recovered/Not Resolved]
